FAERS Safety Report 19839701 (Version 1)
Quarter: 2021Q3

REPORT INFORMATION
  Report Type: Spontaneous
  Country: US (occurrence: US)
  Receive Date: 20210916
  Receipt Date: 20210916
  Transmission Date: 20211014
  Serious: No
  Sender: FDA-Public Use
  Company Number: US-BSC-202000199

PATIENT
  Age: 67 Year
  Sex: Female

DRUGS (1)
  1. VARITHENA [Suspect]
     Active Substance: POLIDOCANOL
     Dosage: IT WAS INJECTED IN TO THE SKIN INSTEAD OF THE VEIN

REACTIONS (2)
  - Vasospasm [Unknown]
  - Incorrect route of product administration [Unknown]
